FAERS Safety Report 5595081-6 (Version None)
Quarter: 2008Q1

REPORT INFORMATION
  Report Type: 
  Country: None (occurrence: None)
  Receive Date: 20080117
  Receipt Date: 20080109
  Transmission Date: 20080703
  Serious: Yes (Hospitalization, Other)
  Sender: FDA-Public Use
  Company Number: JP-TYCO HEALTHCARE/MALLINCKRODT-T200701599

PATIENT

DRUGS (1)
  1. LIQUID BAROSPERSE [Suspect]
     Indication: GASTROINTESTINAL SCAN
     Dates: start: 19920401, end: 19920401

REACTIONS (2)
  - DERMATOMYOSITIS [None]
  - PNEUMONIA ASPIRATION [None]
